FAERS Safety Report 8351452-6 (Version None)
Quarter: 2012Q2

REPORT INFORMATION
  Report Type: 
  Country: None (occurrence: None)
  Receive Date: 20120510
  Receipt Date: 20120327
  Transmission Date: 20120825
  Serious: Yes (Disabling, Other)
  Sender: FDA-Public Use
  Company Number: GB-TEVA-337288ISR

PATIENT
  Sex: Female

DRUGS (3)
  1. LESTAURTINIB [Suspect]
  2. TRISENOX [Suspect]
     Indication: ACUTE MYELOID LEUKAEMIA
     Route: 042
     Dates: start: 20120221, end: 20120303
  3. ATRACURIUM BESYLATE [Suspect]

REACTIONS (1)
  - ACUTE PSYCHOSIS [None]
